FAERS Safety Report 10590365 (Version 1)
Quarter: 2014Q4

REPORT INFORMATION
  Report Type: Spontaneous
  Country: BE (occurrence: BE)
  Receive Date: 20141118
  Receipt Date: 20141118
  Transmission Date: 20150529
  Serious: Yes (Congenital Anomaly, Other)
  Sender: FDA-Public Use
  Company Number: BE-MYLANLABS-2014M1010422

PATIENT

DRUGS (1)
  1. SODIUM VALPROATE [Suspect]
     Active Substance: VALPROATE SODIUM

REACTIONS (9)
  - Joint laxity [Unknown]
  - Dysmorphism [Unknown]
  - Conductive deafness [Unknown]
  - Motor developmental delay [Unknown]
  - Congenital foot malformation [Unknown]
  - Atrial septal defect [Recovered/Resolved]
  - Speech disorder developmental [Unknown]
  - Ear malformation [Unknown]
  - Sensory loss [Unknown]
